FAERS Safety Report 15499311 (Version 1)
Quarter: 2018Q4

REPORT INFORMATION
  Report Type: Spontaneous
  Country: US (occurrence: US)
  Receive Date: 20181007
  Receipt Date: 20181007
  Transmission Date: 20190205
  Serious: Yes (Disabling)
  Sender: FDA-Public Use
  Company Number: None

PATIENT
  Sex: Female
  Weight: 56.7 kg

DRUGS (3)
  1. LGL158VL ANDROID (DEVICE) [Suspect]
     Active Substance: DEVICE
     Dates: start: 20160627, end: 20181007
  2. AUGMENTIN [Suspect]
     Active Substance: AMOXICILLIN\CLAVULANATE POTASSIUM
     Indication: SWELLING
     Route: 048
     Dates: start: 20160629, end: 20181007
  3. AUGMENTIN [Suspect]
     Active Substance: AMOXICILLIN\CLAVULANATE POTASSIUM
     Indication: DYSPNOEA
     Route: 048
     Dates: start: 20160629, end: 20181007

REACTIONS (1)
  - Dyspnoea [None]
